FAERS Safety Report 11988415 (Version 2)
Quarter: 2016Q4

REPORT INFORMATION
  Report Type: Report from Study
  Country: JP (occurrence: JP)
  Receive Date: 20160202
  Receipt Date: 20161102
  Transmission Date: 20170206
  Serious: Yes (Death, Other)
  Sender: FDA-Public Use
  Company Number: JP-009507513-1601JPN011662

PATIENT
  Age: 71 Year
  Sex: Male
  Weight: 63 kg

DRUGS (1)
  1. CUBICIN [Suspect]
     Active Substance: DAPTOMYCIN
     Indication: STAPHYLOCOCCAL SEPSIS
     Dosage: 5.7 MG/KG, QD
     Route: 041
     Dates: start: 20151218, end: 20151223

REACTIONS (3)
  - Surgery [Unknown]
  - Drug ineffective [Unknown]
  - Death [Fatal]
